FAERS Safety Report 6925972-2 (Version None)
Quarter: 2010Q3

REPORT INFORMATION
  Report Type: 
  Country: None (occurrence: None)
  Receive Date: 20100816
  Receipt Date: 20100813
  Transmission Date: 20110219
  Serious: Yes (Death)
  Sender: FDA-Public Use
  Company Number: PHHY2010NO11875

PATIENT

DRUGS (1)
  1. VOLTAREN [Suspect]

REACTIONS (2)
  - ACUTE PSYCHOSIS [None]
  - COMPLETED SUICIDE [None]
